FAERS Safety Report 9014001 (Version 1)
Quarter: 2013Q1

REPORT INFORMATION
  Report Type: Report from Study
  Country: US (occurrence: US)
  Receive Date: 20130115
  Receipt Date: 20130115
  Transmission Date: 20140127
  Serious: Yes (Hospitalization)
  Sender: FDA-Public Use
  Company Number: US-ROCHE-1179686

PATIENT
  Sex: Female
  Weight: 76.73 kg

DRUGS (4)
  1. CAPECITABINE [Suspect]
     Indication: BREAST CANCER METASTATIC
     Route: 048
     Dates: start: 20121212, end: 20121222
  2. CAPECITABINE [Suspect]
     Route: 048
     Dates: start: 20130103
  3. TYKERB [Concomitant]
  4. CREAM (NAME UNKNOWN) [Concomitant]
     Indication: PALMAR-PLANTAR ERYTHRODYSAESTHESIA SYNDROME
     Route: 061

REACTIONS (6)
  - Gallbladder disorder [Recovered/Resolved]
  - Umbilical hernia [Recovered/Resolved]
  - Dyspepsia [Recovered/Resolved]
  - Neuropathy peripheral [Not Recovered/Not Resolved]
  - Palmar-plantar erythrodysaesthesia syndrome [Not Recovered/Not Resolved]
  - Swelling [Not Recovered/Not Resolved]
